FAERS Safety Report 14600604 (Version 1)
Quarter: 2018Q1

REPORT INFORMATION
  Report Type: Spontaneous
  Country: DE (occurrence: DE)
  Receive Date: 20180305
  Receipt Date: 20180305
  Transmission Date: 20180509
  Serious: Yes (Hospitalization)
  Sender: FDA-Public Use
  Company Number: PHHY2018DE035495

PATIENT
  Age: 89 Year
  Sex: Male

DRUGS (3)
  1. AMLODIPINE [Suspect]
     Active Substance: AMLODIPINE BESYLATE
     Indication: HYPERTENSION
     Dosage: 1 DF, QD
     Route: 065
  2. ENALAPRIL MALEATE+HYDROCHLOROTHIAZIDE [Suspect]
     Active Substance: ENALAPRIL MALEATE\HYDROCHLOROTHIAZIDE
     Dosage: 1 DF, QD, FOR AT LEAST 20 YEARS
     Route: 048
  3. ENALAPRIL MALEATE+HYDROCHLOROTHIAZIDE [Suspect]
     Active Substance: ENALAPRIL MALEATE\HYDROCHLOROTHIAZIDE
     Indication: HYPERTENSION
     Dosage: 1 DF, QD, PRESCRIBED 1/2 TABLET IN THE MORNING AND ALSO 1/2 TABLET IN THE EVENINGS IF BLOOD PRESSURE
     Route: 048
     Dates: start: 20180103

REACTIONS (3)
  - Incorrect dose administered [Unknown]
  - Blood pressure decreased [Unknown]
  - Loss of consciousness [Unknown]
